FAERS Safety Report 24338971 (Version 1)
Quarter: 2024Q3

REPORT INFORMATION
  Report Type: Spontaneous
  Country: CA (occurrence: None)
  Receive Date: 20240919
  Receipt Date: 20240919
  Transmission Date: 20241016
  Serious: Yes (Hospitalization, Other)
  Sender: ORION
  Company Number: CA-PFIZER INC-202400257422

PATIENT
  Age: 35 Year
  Sex: Male

DRUGS (2)
  1. METHOTREXATE [Suspect]
     Active Substance: METHOTREXATE
     Indication: Colitis ulcerative
  2. REMICADE [Suspect]
     Active Substance: INFLIXIMAB
     Indication: Product used for unknown indication

REACTIONS (3)
  - Colitis ulcerative [Recovered/Resolved]
  - Drug ineffective for unapproved indication [Recovered/Resolved]
  - Product use in unapproved indication [Unknown]
